FAERS Safety Report 5191399-X (Version None)
Quarter: 2006Q4

REPORT INFORMATION
  Report Type: 
  Country: None (occurrence: None)
  Receive Date: 20061226
  Receipt Date: 20061212
  Transmission Date: 20070319
  Serious: Yes (Death)
  Sender: FDA-Public Use
  Company Number: JP-MERCK-0612USA02581

PATIENT
  Age: 97 Year
  Sex: Female

DRUGS (14)
  1. STROMECTOL [Suspect]
     Indication: ACARODERMATITIS
     Route: 048
     Dates: start: 20061107, end: 20061107
  2. STROMECTOL [Suspect]
     Route: 048
     Dates: start: 20061114, end: 20061114
  3. STROMECTOL [Suspect]
     Route: 048
     Dates: start: 20061121, end: 20061121
  4. STROMECTOL [Suspect]
     Route: 048
     Dates: start: 20061128, end: 20061128
  5. STROMECTOL [Suspect]
     Route: 048
     Dates: start: 20061205, end: 20061205
  6. [THERAPY UNSPECIFIED] [Concomitant]
     Indication: ACRODERMATITIS
     Route: 061
     Dates: start: 20061106, end: 20061106
  7. [THERAPY UNSPECIFIED] [Concomitant]
     Route: 061
     Dates: start: 20061121, end: 20061121
  8. [THERAPY UNSPECIFIED] [Concomitant]
     Route: 061
     Dates: start: 20061207, end: 20061207
  9. ZYRTEC [Concomitant]
     Indication: ACARODERMATITIS
     Route: 048
     Dates: start: 20061107, end: 20061207
  10. ZYRTEC [Concomitant]
     Route: 048
     Dates: start: 20061121, end: 20061121
  11. ZYRTEC [Concomitant]
     Route: 048
     Dates: start: 20061205, end: 20061205
  12. EURAX [Concomitant]
     Indication: ACARODERMATITIS
     Route: 061
     Dates: start: 20061107, end: 20061107
  13. EURAX [Concomitant]
     Route: 061
     Dates: start: 20061121, end: 20061121
  14. NUTRITIONAL SUPPLEMENTS [Concomitant]
     Route: 065

REACTIONS (2)
  - CEREBRAL INFARCTION [None]
  - MARASMUS [None]
